FAERS Safety Report 21088139 (Version 2)
Quarter: 2022Q3

REPORT INFORMATION
  Report Type: Spontaneous
  Country: US (occurrence: US)
  Receive Date: 20220715
  Receipt Date: 20220718
  Transmission Date: 20221026
  Serious: Yes (Hospitalization, Other)
  Sender: FDA-Public Use
  Company Number: US-PFIZER INC-PV202200017018

PATIENT
  Age: 4 Year
  Sex: Male

DRUGS (5)
  1. MEROPENEM [Suspect]
     Active Substance: MEROPENEM
     Indication: Escherichia bacteraemia
     Dosage: 40 MG/KG INTRAVENOUSLY EVERY 8 HRS
     Route: 042
  2. MEROPENEM [Suspect]
     Active Substance: MEROPENEM
     Dosage: CONTINUOUS INFUSION AT A DOSE OF 10 MG/KG/H
     Route: 042
  3. MEROPENEM [Suspect]
     Active Substance: MEROPENEM
     Dosage: 20 MG/KG, 2X/DAY (12 HOURS LATER/INTERMITTENT)
  4. AMIKACIN [Concomitant]
     Active Substance: AMIKACIN
     Indication: Escherichia bacteraemia
     Dosage: UNK
  5. VANCOMYCIN [Concomitant]
     Active Substance: VANCOMYCIN
     Indication: Escherichia bacteraemia
     Dosage: UNK

REACTIONS (2)
  - Overdose [Unknown]
  - Renal failure [Unknown]
